FAERS Safety Report 17489667 (Version 1)
Quarter: 2020Q1

REPORT INFORMATION
  Report Type: Report from Study
  Country: US (occurrence: US)
  Receive Date: 20200303
  Receipt Date: 20200303
  Transmission Date: 20200409
  Serious: Yes (Hospitalization)
  Sender: FDA-Public Use
  Company Number: US-ENDO PHARMACEUTICALS INC-2020-001786

PATIENT
  Age: 3 Year
  Sex: Male
  Weight: 21.4 kg

DRUGS (6)
  1. PREDNISONE. [Concomitant]
     Active Substance: PREDNISONE
     Indication: ACUTE LYMPHOCYTIC LEUKAEMIA
     Dosage: 20 MG/M2, BID ON DAYS 1-5, 29-33, 57-61
     Route: 048
     Dates: start: 20200108, end: 20200205
  2. METHOTREXATE SODIUM. [Suspect]
     Active Substance: METHOTREXATE SODIUM
     Indication: ACUTE LYMPHOCYTIC LEUKAEMIA
     Dosage: 20 MG/M2, WEEKLY (DAY 8,15, 22, 29, 36, 43, 50, 57, 64, 71, 78
     Route: 048
     Dates: start: 20200114, end: 20200205
  3. INCB018424 (RUXOLITINIB) [Suspect]
     Active Substance: RUXOLITINIB
     Indication: ACUTE LYMPHOCYTIC LEUKAEMIA
     Dosage: 40 MG, BID (DAYS 1-14, 29-42, 57-50)
     Route: 048
     Dates: start: 20200108, end: 20200205
  4. METHOTREXATE. [Suspect]
     Active Substance: METHOTREXATE
     Indication: ACUTE LYMPHOCYTIC LEUKAEMIA
     Dosage: 15 MG ONE TIME ON DAYS 1 AND 29 OF CYCLES 1 AND 2
     Route: 037
     Dates: start: 20200108, end: 20200205
  5. VINCRISTINE [Concomitant]
     Active Substance: VINCRISTINE
     Indication: ACUTE LYMPHOCYTIC LEUKAEMIA
     Dosage: 1.19 MG ONE TIME ON DAYS 1, 29, 57
     Route: 042
     Dates: start: 20200108, end: 20200205
  6. MERCAPTOPURINE. [Suspect]
     Active Substance: MERCAPTOPURINE
     Indication: ACUTE LYMPHOCYTIC LEUKAEMIA
     Dosage: 60 MG ON DAYS 1-84
     Route: 048
     Dates: start: 20200108, end: 20200205

REACTIONS (4)
  - Anaemia [Recovered/Resolved]
  - Dehydration [Recovering/Resolving]
  - Aspartate aminotransferase increased [Recovering/Resolving]
  - Alanine aminotransferase increased [Recovering/Resolving]

NARRATIVE: CASE EVENT DATE: 20200203
